FAERS Safety Report 5515467-5 (Version None)
Quarter: 2007Q4

REPORT INFORMATION
  Report Type: 
  Country: None (occurrence: None)
  Receive Date: 20071113
  Receipt Date: 20070226
  Transmission Date: 20080405
  Serious: No
  Sender: FDA-Public Use
  Company Number: A0640969A

PATIENT
  Age: 72 Year
  Sex: Female

DRUGS (6)
  1. COREG [Suspect]
     Dosage: 6.25MG TWICE PER DAY
     Route: 048
  2. LASIX [Concomitant]
  3. ASPIRIN [Concomitant]
  4. WARFARIN SODIUM [Concomitant]
  5. MULTI-VITAMIN [Concomitant]
  6. PREVACID [Concomitant]

REACTIONS (5)
  - EAR DISCOMFORT [None]
  - FACIAL PAIN [None]
  - FEELING JITTERY [None]
  - HEADACHE [None]
  - PHARYNGOLARYNGEAL DISCOMFORT [None]
